FAERS Safety Report 25549873 (Version 1)
Quarter: 2025Q3

REPORT INFORMATION
  Report Type: Spontaneous
  Country: US (occurrence: US)
  Receive Date: 20250714
  Receipt Date: 20250714
  Transmission Date: 20251021
  Serious: No
  Sender: NOVO NORDISK
  Company Number: US-NOVOPROD-1379700

PATIENT
  Age: 54 Year
  Sex: Female

DRUGS (1)
  1. SEMAGLUTIDE [Suspect]
     Active Substance: SEMAGLUTIDE
     Indication: Weight control
     Route: 058
     Dates: start: 202407, end: 202502

REACTIONS (3)
  - Blood cholesterol increased [Unknown]
  - Weight loss poor [Unknown]
  - Counterfeit product administered [Unknown]
